FAERS Safety Report 18585272 (Version 1)
Quarter: 2020Q4

REPORT INFORMATION
  Report Type: Spontaneous
  Country: US (occurrence: US)
  Receive Date: 20201203
  Receipt Date: 20201203
  Transmission Date: 20210114
  Serious: Yes (Death, Hospitalization)
  Sender: FDA-Public Use
  Company Number: None

PATIENT
  Age: 31 Year
  Sex: Male
  Weight: 56.8 kg

DRUGS (4)
  1. BLEOMYCIN [Suspect]
     Active Substance: BLEOMYCIN SULFATE
     Dates: end: 20201006
  2. CISPLATIN. [Suspect]
     Active Substance: CISPLATIN
     Dates: end: 20200913
  3. ETOPOSIDE (VP-16) [Suspect]
     Active Substance: ETOPOSIDE
     Dates: end: 20200913
  4. G-CSF (FILGRASTIM AMGEN) [Suspect]
     Active Substance: FILGRASTIM
     Dates: end: 20200915

REACTIONS (4)
  - Traumatic lung injury [None]
  - Respiratory failure [None]
  - Pneumothorax [None]
  - Pneumomediastinum [None]

NARRATIVE: CASE EVENT DATE: 20201201
